FAERS Safety Report 9010581 (Version 6)
Quarter: 2013Q4

REPORT INFORMATION
  Report Type: Spontaneous
  Country: US (occurrence: US)
  Receive Date: 20130109
  Receipt Date: 20131231
  Transmission Date: 20140711
  Serious: Yes (Hospitalization, Disabling, Other)
  Sender: FDA-Public Use
  Company Number: US-009507513-1301USA000792

PATIENT
  Sex: Female
  Weight: 65.9 kg

DRUGS (12)
  1. FOSAMAX [Suspect]
     Indication: OSTEOPENIA
     Dosage: 70 MG, QW
     Route: 048
     Dates: start: 20040203, end: 20090310
  2. ALENDRONATE SODIUM [Suspect]
     Indication: OSTEOPENIA
     Dosage: 70 MG, QW
     Route: 048
     Dates: start: 200802, end: 20101102
  3. CALCIUM (UNSPECIFIED) [Concomitant]
     Dosage: 1500 MG, QD
     Dates: start: 1993
  4. ASPIRIN [Concomitant]
     Dosage: 81 MG, QD
     Dates: start: 2007
  5. LEVOTHYROXINE SODIUM [Concomitant]
     Indication: HYPOTHYROIDISM
     Dosage: UNK
     Dates: start: 20091003
  6. TRAMADOL HYDROCHLORIDE [Concomitant]
     Indication: PAIN
     Dosage: UNK
     Dates: start: 20091024, end: 200911
  7. HYDROCODONE [Concomitant]
     Indication: PAIN
     Dosage: UNK
     Dates: start: 20020604, end: 201011
  8. LEXAPRO [Concomitant]
     Indication: DEPRESSION
     Dosage: UNK
     Dates: start: 20040122, end: 200611
  9. CITALOPRAM [Concomitant]
     Indication: DEPRESSION
     Dosage: UNK
     Dates: start: 200605
  10. SYNTHROID [Concomitant]
     Indication: HYPOTHYROIDISM
     Dosage: UNK
     Dates: start: 20040203
  11. BUSPIRONE HYDROCHLORIDE [Concomitant]
     Indication: ANXIETY
     Dosage: UNK
     Dates: start: 20040817, end: 200701
  12. CLONAZEPAM [Concomitant]
     Indication: ANXIETY
     Dosage: UNK
     Dates: start: 20040720, end: 200610

REACTIONS (30)
  - Femur fracture [Not Recovered/Not Resolved]
  - Intramedullary rod insertion [Unknown]
  - Chest pain [Unknown]
  - Low turnover osteopathy [Not Recovered/Not Resolved]
  - Neoplasm malignant [Unknown]
  - Osteoporosis [Not Recovered/Not Resolved]
  - Stress fracture [Not Recovered/Not Resolved]
  - Femur fracture [Not Recovered/Not Resolved]
  - Fall [Unknown]
  - Impaired healing [Unknown]
  - Medical device complication [Unknown]
  - Hypertension [Unknown]
  - Herpes virus infection [Unknown]
  - Infection [Unknown]
  - Cough [Unknown]
  - Osteoarthritis [Unknown]
  - Muscle tightness [Unknown]
  - Migraine [Unknown]
  - Fungal infection [Unknown]
  - Ear operation [Unknown]
  - Anxiety [Unknown]
  - Arthritis [Unknown]
  - Weight decreased [Unknown]
  - Weight increased [Unknown]
  - Vitamin D deficiency [Unknown]
  - Arthropathy [Unknown]
  - Arthropathy [Unknown]
  - Muscular weakness [Unknown]
  - Headache [Unknown]
  - Back pain [Unknown]
